FAERS Safety Report 9017795 (Version 4)
Quarter: 2013Q3

REPORT INFORMATION
  Report Type: Spontaneous
  Country: BR (occurrence: BR)
  Receive Date: 20130118
  Receipt Date: 20130715
  Transmission Date: 20140515
  Serious: Yes (Other)
  Sender: FDA-Public Use
  Company Number: BR-BIOGENIDEC-2012BI023718

PATIENT
  Age: 22 Year
  Sex: Female
  Weight: 103 kg

DRUGS (4)
  1. AVONEX [Suspect]
     Indication: MULTIPLE SCLEROSIS
     Route: 030
     Dates: start: 20111110, end: 201204
  2. FOLIC ACID [Concomitant]
     Indication: PREGNANCY
     Route: 048
     Dates: start: 201204, end: 20121231
  3. FERROUS SULFATE [Concomitant]
     Indication: PREGNANCY
     Route: 048
     Dates: start: 201208, end: 20121231
  4. METHYLDOPA [Concomitant]
     Indication: PREGNANCY
     Route: 048
     Dates: end: 20121231

REACTIONS (2)
  - Caesarean section [Unknown]
  - Hypertension [Unknown]
